FAERS Safety Report 6355559-4 (Version None)
Quarter: 2009Q3

REPORT INFORMATION
  Report Type: 
  Country: None (occurrence: None)
  Receive Date: 20090910
  Receipt Date: 20090904
  Transmission Date: 20100115
  Serious: Yes (Life-Threatening)
  Sender: FDA-Public Use
  Company Number: 2009TJ0200

PATIENT
  Age: 44 Year
  Sex: Female

DRUGS (1)
  1. EPINEPHRINE [Suspect]
     Indication: ANAPHYLAXIS PROPHYLAXIS
     Dosage: 0.3 MG, AS NEEDED
     Dates: end: 20090101

REACTIONS (2)
  - ARTHROPOD STING [None]
  - DEVICE MALFUNCTION [None]
